FAERS Safety Report 9255457 (Version 3)
Quarter: 2013Q3

REPORT INFORMATION
  Report Type: Spontaneous
  Country: US (occurrence: None)
  Receive Date: 20130418
  Receipt Date: 20130701
  Transmission Date: 20140515
  Serious: Yes (Other)
  Sender: FDA-Public Use
  Company Number: ADR-2013-00659

PATIENT
  Sex: Male

DRUGS (3)
  1. BACLOFEN INTRATHECAL [Suspect]
     Indication: SPINAL CORD INJURY
  2. BACLOFEN INTRATHECAL [Suspect]
     Indication: MUSCLE SPASTICITY
  3. PERCOCET AND MORPHINE (ORAL) [Concomitant]

REACTIONS (6)
  - Musculoskeletal stiffness [None]
  - Mobility decreased [None]
  - Impaired driving ability [None]
  - Muscle spasticity [None]
  - Device alarm issue [None]
  - Device failure [None]
